FAERS Safety Report 5154648-X (Version None)
Quarter: 2006Q4

REPORT INFORMATION
  Report Type: 
  Country: None (occurrence: None)
  Receive Date: 20061113
  Receipt Date: 20061031
  Transmission Date: 20070319
  Serious: Yes (Death)
  Sender: FDA-Public Use
  Company Number: 2006032614

PATIENT
  Age: 59 Year
  Sex: Female
  Weight: 45 kg

DRUGS (5)
  1. SUTENT [Suspect]
     Indication: METASTATIC RENAL CELL CARCINOMA
     Dosage: 50 MG (50 MG, 1 IN 1 D), ORAL
     Route: 048
     Dates: start: 20060217, end: 20060228
  2. DIPYRONE TAB [Concomitant]
  3. SOTALOL HCL [Concomitant]
  4. METOCLOPRAMIDE [Concomitant]
  5. OXAZEPAM [Concomitant]

REACTIONS (3)
  - DYSPNOEA [None]
  - HEPATIC FAILURE [None]
  - OEDEMA PERIPHERAL [None]
